FAERS Safety Report 9821511 (Version 1)
Quarter: 2014Q1

REPORT INFORMATION
  Report Type: Spontaneous
  Country: DE (occurrence: DE)
  Receive Date: 20140116
  Receipt Date: 20140116
  Transmission Date: 20141002
  Serious: Yes (Other)
  Sender: FDA-Public Use
  Company Number: DE-PFIZER INC-2014010465

PATIENT
  Age: 25 Year
  Sex: Male

DRUGS (8)
  1. METHYLPREDNISOLONE [Suspect]
     Indication: LANGERHANS^ CELL HISTIOCYTOSIS
     Dosage: UNK
  2. METHOTREXATE SODIUM [Suspect]
     Indication: LANGERHANS^ CELL HISTIOCYTOSIS
     Dosage: UNK
     Dates: end: 200806
  3. METHOTREXATE SODIUM [Suspect]
     Dosage: UNK
     Dates: start: 200811, end: 2010
  4. CLADRIBINE [Suspect]
     Indication: LANGERHANS^ CELL HISTIOCYTOSIS
     Dosage: 5 MG/M2, D2-D6
     Dates: start: 201109
  5. CYTARABINE [Suspect]
     Indication: LANGERHANS^ CELL HISTIOCYTOSIS
     Dosage: 100MG/M2, 2X/D, D1-D5
     Dates: start: 201109
  6. VINBLASTINE [Suspect]
     Indication: LANGERHANS^ CELL HISTIOCYTOSIS
     Dosage: UNK
  7. 6-MERCAPTOPURINE [Suspect]
     Indication: LANGERHANS^ CELL HISTIOCYTOSIS
     Dosage: UNK
     Dates: end: 200806
  8. 6-MERCAPTOPURINE [Suspect]
     Dosage: UNK
     Dates: start: 200811, end: 2010

REACTIONS (2)
  - Bone marrow failure [Unknown]
  - Epistaxis [Unknown]
